FAERS Safety Report 8777057 (Version 1)
Quarter: 2012Q4

REPORT INFORMATION
  Report Type: 
  Country: NL (occurrence: NL)
  Receive Date: 20120911
  Receipt Date: 20120911
  Transmission Date: 20130627
  Serious: Yes (Other)
  Sender: FDA-Public Use
  Company Number: PHHY2012NL075154

PATIENT
  Age: 71 Year
  Sex: Female
  Weight: 81 kg

DRUGS (8)
  1. ZOMETA [Suspect]
     Indication: BREAST CANCER METASTATIC
     Dosage: 4 mg/100 ml once every 56 days
     Route: 042
  2. ZOMETA [Suspect]
     Dosage: 4 mg/100 ml once every 56 days
     Route: 042
     Dates: start: 20120104
  3. ZOMETA [Suspect]
     Dosage: 4 mg/100 ml once every 56 days
     Route: 042
     Dates: start: 20120702
  4. ZOMETA [Suspect]
     Dosage: 4 mg/100 ml once every 56 days
     Route: 042
     Dates: start: 20120829
  5. ZOMETA [Suspect]
     Dosage: 8 mg/ 2 months
  6. EXEMESTANE [Concomitant]
  7. BISOPROLOL [Concomitant]
  8. PARACETAMOL [Concomitant]

REACTIONS (4)
  - Metastases to pelvis [Not Recovered/Not Resolved]
  - Arthralgia [Unknown]
  - Fall [Unknown]
  - Pain in extremity [Not Recovered/Not Resolved]
